FAERS Safety Report 5415010-5 (Version None)
Quarter: 2007Q3

REPORT INFORMATION
  Report Type: 
  Country: None (occurrence: None)
  Receive Date: 20070813
  Receipt Date: 20070730
  Transmission Date: 20080115
  Serious: Yes (Other)
  Sender: FDA-Public Use
  Company Number: 2007AL003107

PATIENT
  Age: 82 Year
  Sex: Female

DRUGS (3)
  1. NAPROXEN [Suspect]
     Indication: ARTHRALGIA
     Dosage: 500 MG; BID; PO
     Route: 048
     Dates: start: 20070712, end: 20070720
  2. PROPRANOLOL [Concomitant]
  3. ESTRADIOL [Concomitant]

REACTIONS (2)
  - EPISTAXIS [None]
  - PHARMACEUTICAL PRODUCT COMPLAINT [None]
